FAERS Safety Report 21058770 (Version 2)
Quarter: 2022Q3

REPORT INFORMATION
  Report Type: Spontaneous
  Country: GR (occurrence: GR)
  Receive Date: 20220708
  Receipt Date: 20220711
  Transmission Date: 20221027
  Serious: Yes (Other)
  Sender: FDA-Public Use
  Company Number: GR-TEVA-2022-GR-2049163

PATIENT
  Age: 64 Year
  Sex: Female

DRUGS (12)
  1. RISPERDAL [Suspect]
     Active Substance: RISPERIDONE
     Indication: Psychopathic personality
     Dosage: HALF-0-1 (REDUCTION)
     Route: 065
  2. RISPERDAL [Suspect]
     Active Substance: RISPERIDONE
     Indication: Mental disorder
     Dosage: 1-0-1 HALF
     Route: 065
  3. RISPERDAL [Suspect]
     Active Substance: RISPERIDONE
     Dosage: 1 TAB IN THE MORNING AND 1,5 TAB IN THE EVENING DAILY, REDUCED TO 0,5 IN MORNING AND 1 IN EVENING
     Route: 065
  4. RISPERDAL [Suspect]
     Active Substance: RISPERIDONE
     Dosage: 1 TAB IN THE MORNING AND 1,5 TAB IN THE EVENING DAILY, REDUCED TO 0,5 IN MORNING AND 1 IN EVENING
     Route: 065
  5. SERTRALINE [Suspect]
     Active Substance: SERTRALINE HYDROCHLORIDE
     Indication: Psychopathic personality
     Dosage: 50 MILLIGRAM DAILY; 1-0-0
     Route: 065
  6. SERTRALINE [Suspect]
     Active Substance: SERTRALINE HYDROCHLORIDE
     Indication: Mental disorder
  7. QUETIAPINE [Suspect]
     Active Substance: QUETIAPINE
     Indication: Psychopathic personality
     Dosage: 100 MILLIGRAM DAILY;  0-0-1
     Route: 065
  8. QUETIAPINE [Suspect]
     Active Substance: QUETIAPINE
     Indication: Mental disorder
  9. NEBIVOLOL HYDROCHLORIDE [Concomitant]
     Active Substance: NEBIVOLOL HYDROCHLORIDE
     Indication: Hypertension
     Dosage: 5 MILLIGRAM DAILY; 1-0-0
  10. ARTICLOX [Concomitant]
     Indication: Vitamin B12 deficiency
     Dosage: .0667 MILLIGRAM DAILY; AMP 1MG EVERY 15 DAYS
  11. FOLIC ACID [Concomitant]
     Active Substance: FOLIC ACID
     Indication: Folate deficiency
     Dosage: 5 MILLIGRAM DAILY; 1-0-0
  12. LIPIDIL [Concomitant]
     Active Substance: FENOFIBRATE
     Indication: Hypercholesterolaemia
     Dosage: 145 S 1-0-0

REACTIONS (1)
  - Hyperprolactinaemia [Recovered/Resolved]

NARRATIVE: CASE EVENT DATE: 20210929
